FAERS Safety Report 12867685 (Version 2)
Quarter: 2016Q4

REPORT INFORMATION
  Report Type: Report from Study
  Country: TW (occurrence: TW)
  Receive Date: 20161020
  Receipt Date: 20161118
  Transmission Date: 20170207
  Serious: No
  Sender: FDA-Public Use
  Company Number: TW-ALEXION PHARMACEUTICALS INC.-A201607972

PATIENT
  Age: 19 Year
  Sex: Female
  Weight: 44 kg

DRUGS (4)
  1. EPOETIN [Concomitant]
     Active Substance: ERYTHROPOIETIN
     Indication: ERYTHROPOIESIS ABNORMAL
     Dosage: 5000 IU, QW
     Route: 065
  2. SOLIRIS [Suspect]
     Active Substance: ECULIZUMAB
     Indication: HAEMOLYTIC URAEMIC SYNDROME
     Dosage: UNK, QW
     Route: 042
     Dates: start: 20160412, end: 20160503
  3. SOLIRIS [Suspect]
     Active Substance: ECULIZUMAB
     Dosage: UNK, Q2W
     Route: 042
     Dates: start: 20160510
  4. BISOPROLOL [Concomitant]
     Active Substance: BISOPROLOL
     Indication: HYPERTENSION
     Dosage: 1.25 MG, QD
     Route: 065

REACTIONS (1)
  - Complement factor C3 decreased [Unknown]

NARRATIVE: CASE EVENT DATE: 20161007
